FAERS Safety Report 26175525 (Version 1)
Quarter: 2025Q4

REPORT INFORMATION
  Report Type: Spontaneous
  Country: US (occurrence: US)
  Receive Date: 20251218
  Receipt Date: 20251218
  Transmission Date: 20260118
  Serious: Yes (Other)
  Sender: INSUD PHARMA
  Company Number: US-EXELTIS PHARMACEUTICAL HOLDING, S.L.-2512US10551

PATIENT

DRUGS (1)
  1. TESTOSTERONE [Suspect]
     Active Substance: TESTOSTERONE
     Indication: Muscle building therapy
     Dosage: UNK
     Route: 065

REACTIONS (7)
  - Atrial fibrillation [Recovered/Resolved]
  - Cardiomyopathy [Recovered/Resolved]
  - Polycythaemia [Recovered/Resolved]
  - Dyspnoea [Recovered/Resolved]
  - Orthopnoea [Recovered/Resolved]
  - Nocturia [Recovered/Resolved]
  - Oedema peripheral [Recovered/Resolved]
